FAERS Safety Report 6014533-8 (Version None)
Quarter: 2008Q4

REPORT INFORMATION
  Report Type: 
  Country: None (occurrence: None)
  Receive Date: 20081219
  Receipt Date: 20080910
  Transmission Date: 20090506
  Serious: No
  Sender: FDA-Public Use
  Company Number: A0741136A

PATIENT
  Age: 78 Year
  Sex: Male

DRUGS (1)
  1. AVODART [Suspect]
     Route: 048

REACTIONS (3)
  - PAIN [None]
  - POLLAKIURIA [None]
  - URINE FLOW DECREASED [None]
